FAERS Safety Report 14197907 (Version 1)
Quarter: 2017Q4

REPORT INFORMATION
  Report Type: Report from Study
  Country: MX (occurrence: MX)
  Receive Date: 20171117
  Receipt Date: 20171117
  Transmission Date: 20180321
  Serious: Yes (Other)
  Sender: FDA-Public Use
  Company Number: MX-ROCHE-2023227

PATIENT
  Age: 60 Year
  Sex: Female

DRUGS (6)
  1. ENALAPRIL [Concomitant]
     Active Substance: ENALAPRIL
     Indication: HYPOTENSION
  2. TRASTUZUMAB. [Suspect]
     Active Substance: TRASTUZUMAB
     Indication: HER-2 POSITIVE BREAST CANCER
     Route: 042
     Dates: start: 201311, end: 201410
  3. PERTUZUMAB. [Suspect]
     Active Substance: PERTUZUMAB
     Indication: HER-2 POSITIVE BREAST CANCER
     Route: 065
  4. PACLITAXEL. [Concomitant]
     Active Substance: PACLITAXEL
     Route: 042
     Dates: start: 201311
  5. ANASTROZOLE. [Concomitant]
     Active Substance: ANASTROZOLE
     Route: 065
     Dates: start: 201403
  6. CINNARIZINE [Concomitant]
     Active Substance: CINNARIZINE
     Indication: VERTIGO

REACTIONS (12)
  - Vertigo [Recovering/Resolving]
  - Medication error [Unknown]
  - Pain in extremity [Not Recovered/Not Resolved]
  - Defaecation urgency [Recovered/Resolved]
  - Hypoaesthesia oral [Recovered/Resolved]
  - Depression [Recovered/Resolved]
  - Bronchitis chronic [Not Recovered/Not Resolved]
  - Cystitis [Recovering/Resolving]
  - Fatigue [Recovered/Resolved]
  - Skin burning sensation [Recovered/Resolved]
  - Skin discolouration [Recovered/Resolved]
  - Influenza [Unknown]
